FAERS Safety Report 5697773-7 (Version None)
Quarter: 2008Q2

REPORT INFORMATION
  Report Type: 
  Country: None (occurrence: None)
  Receive Date: 20080408
  Receipt Date: 20080312
  Transmission Date: 20081010
  Serious: Yes (Hospitalization)
  Sender: FDA-Public Use
  Company Number: JP-ASTRAZENECA-2007AP08174

PATIENT
  Age: 26119 Day
  Sex: Female

DRUGS (12)
  1. IRESSA [Suspect]
     Indication: LUNG ADENOCARCINOMA
     Route: 048
     Dates: start: 20071120, end: 20071219
  2. PAXIL [Concomitant]
     Indication: DEPRESSION
     Route: 048
  3. OMEPRAL [Concomitant]
     Indication: REFLUX OESOPHAGITIS
     Route: 048
  4. VASOLAN [Concomitant]
     Indication: ATRIAL FIBRILLATION
     Route: 048
  5. LIPIDIL [Concomitant]
     Indication: HYPERLIPIDAEMIA
     Route: 048
  6. RHYTHMY [Concomitant]
     Indication: INSOMNIA
     Route: 048
  7. SEROQUEL [Concomitant]
     Indication: ANXIETY DISORDER
     Route: 048
  8. RISEDRONATE SODIUM [Concomitant]
     Indication: OSTEOPOROSIS
     Route: 048
  9. ROCALTROL [Concomitant]
     Indication: OSTEOPOROSIS
     Route: 048
  10. MAGMITT [Concomitant]
     Indication: CONSTIPATION
     Route: 048
  11. PREDONINE [Concomitant]
     Indication: INTRACRANIAL PRESSURE INCREASED
     Route: 048
  12. FASTIC [Concomitant]
     Indication: DIABETES MELLITUS
     Route: 048

REACTIONS (1)
  - INTERSTITIAL LUNG DISEASE [None]
